FAERS Safety Report 9979354 (Version 1)
Quarter: 2014Q1

REPORT INFORMATION
  Report Type: Spontaneous
  Country: US (occurrence: US)
  Receive Date: 20140306
  Receipt Date: 20140306
  Transmission Date: 20141002
  Serious: No
  Sender: FDA-Public Use
  Company Number: US-ABBVIE-13P-163-1172105-00

PATIENT
  Sex: 0

DRUGS (1)
  1. HUMIRA [Suspect]
     Indication: PSORIASIS
     Route: 058
     Dates: end: 201211

REACTIONS (3)
  - Tuberculin test positive [Not Recovered/Not Resolved]
  - Lyme disease [Recovered/Resolved]
  - VIIth nerve paralysis [Recovered/Resolved]
